FAERS Safety Report 5526707-0 (Version None)
Quarter: 2007Q4

REPORT INFORMATION
  Report Type: 
  Country: None (occurrence: None)
  Receive Date: 20071123
  Receipt Date: 20061207
  Transmission Date: 20080405
  Serious: Yes (Death, Hospitalization)
  Sender: FDA-Public Use
  Company Number: 2006MP001277

PATIENT
  Age: 58 Year
  Sex: Female
  Weight: 77 kg

DRUGS (11)
  1. GLIADEL [Suspect]
     Indication: GLIOBLASTOMA MULTIFORME
     Dosage: ;X1;ICER
     Dates: start: 20060711
  2. 06-BENZYLGUANINE [Suspect]
     Indication: GLIOBLASTOMA MULTIFORME
     Dosage: 30 MG/M**2/QD;IV
     Route: 042
     Dates: start: 20060711, end: 20060715
  3. DECADRON [Concomitant]
  4. VALPROIC ACID [Concomitant]
  5. PROTONIX /01263201/ [Concomitant]
  6. LEXAPRO [Concomitant]
  7. SENOKOT [Concomitant]
  8. SODIUM CHLORIDE [Concomitant]
  9. TYLENOL (CAPLET) [Concomitant]
  10. DUCULAX [Concomitant]
  11. LOVENOX [Concomitant]

REACTIONS (5)
  - DISEASE PROGRESSION [None]
  - INTRACRANIAL HYPOTENSION [None]
  - RENAL FAILURE ACUTE [None]
  - RENAL TUBULAR NECROSIS [None]
  - WOUND INFECTION STAPHYLOCOCCAL [None]
